FAERS Safety Report 21928230 (Version 3)
Quarter: 2023Q1

REPORT INFORMATION
  Report Type: Report from Study
  Country: DE (occurrence: DE)
  Receive Date: 20230130
  Receipt Date: 20230325
  Transmission Date: 20230417
  Serious: Yes (Death, Life-Threatening)
  Sender: FDA-Public Use
  Company Number: DE-ABBVIE-4282046

PATIENT
  Age: 74 Year
  Sex: Female
  Weight: 81 kg

DRUGS (7)
  1. VENETOCLAX [Suspect]
     Active Substance: VENETOCLAX
     Indication: Acute myeloid leukaemia
     Route: 048
     Dates: start: 20221208, end: 20221221
  2. VORICONAZOLE [Concomitant]
     Active Substance: VORICONAZOLE
     Indication: Atypical pneumonia
     Route: 042
     Dates: start: 20230113, end: 20230116
  3. MEROPENEM [Concomitant]
     Active Substance: MEROPENEM
     Indication: Atypical pneumonia
     Route: 042
     Dates: start: 20221219, end: 20230116
  4. AMBISOME [Concomitant]
     Active Substance: AMPHOTERICIN B
     Indication: Atypical pneumonia
     Route: 042
     Dates: start: 20221216, end: 20230112
  5. LINEZOLID [Concomitant]
     Active Substance: LINEZOLID
     Indication: Atypical pneumonia
     Route: 042
     Dates: start: 20221219, end: 20230116
  6. MITOXANTRONE [Concomitant]
     Active Substance: MITOXANTRONE HYDROCHLORIDE
     Indication: Acute myeloid leukaemia
     Dates: start: 20221210, end: 20221212
  7. CYTARABINE [Concomitant]
     Active Substance: CYTARABINE
     Indication: Acute myeloid leukaemia
     Dates: start: 20221210, end: 20221212

REACTIONS (3)
  - Infection [Fatal]
  - Cardiac failure chronic [Fatal]
  - Pneumonia [Fatal]

NARRATIVE: CASE EVENT DATE: 20230115
